FAERS Safety Report 14924215 (Version 1)
Quarter: 2018Q2

REPORT INFORMATION
  Report Type: Spontaneous
  Country: GB (occurrence: GB)
  Receive Date: 20180522
  Receipt Date: 20180522
  Transmission Date: 20180711
  Serious: Yes (Other)
  Sender: FDA-Public Use
  Company Number: GB-PFIZER INC-2018202255

PATIENT
  Age: 41 Year
  Sex: Male
  Weight: 77 kg

DRUGS (2)
  1. COCODAMOL [Concomitant]
     Active Substance: ACETAMINOPHEN\CODEINE PHOSPHATE
     Dosage: 30/500, SHORT TERM COURSE
  2. PREGABALIN. [Suspect]
     Active Substance: PREGABALIN
     Indication: BACK PAIN
     Dosage: 3 IN THE MORNING AND 1- 2 AT NIGHT
     Route: 048
     Dates: start: 20180317, end: 20180321

REACTIONS (6)
  - Headache [Recovering/Resolving]
  - Feeling hot [Unknown]
  - Product substitution issue [Unknown]
  - Eye pain [Recovering/Resolving]
  - Nausea [Recovering/Resolving]
  - Sensory disturbance [Not Recovered/Not Resolved]

NARRATIVE: CASE EVENT DATE: 20180318
